FAERS Safety Report 24913197 (Version 1)
Quarter: 2025Q1

REPORT INFORMATION
  Report Type: Report from Study
  Country: US (occurrence: US)
  Receive Date: 20250201
  Receipt Date: 20250201
  Transmission Date: 20250409
  Serious: Yes (Other)
  Sender: ROCHE
  Company Number: US-ROCHE-10000195119

PATIENT
  Age: 65 Year
  Sex: Male

DRUGS (1)
  1. TECENTRIQ [Suspect]
     Active Substance: ATEZOLIZUMAB
     Indication: Neuroendocrine carcinoma
     Dosage: INFUSE 20ML (1200MG) INTRAVENOUSLY EVERY 21 DAY(S)
     Route: 040

REACTIONS (2)
  - Acute myocardial infarction [Unknown]
  - Off label use [Unknown]
